FAERS Safety Report 23116887 (Version 1)
Quarter: 2023Q4

REPORT INFORMATION
  Report Type: Spontaneous
  Country: FR (occurrence: FR)
  Receive Date: 20231027
  Receipt Date: 20231027
  Transmission Date: 20240109
  Serious: Yes (Hospitalization)
  Sender: FDA-Public Use
  Company Number: FR-SUN PHARMACEUTICAL INDUSTRIES LTD-2023RR-414674

PATIENT
  Age: 93 Year
  Sex: Female
  Weight: 43 kg

DRUGS (1)
  1. PAROXETINE [Suspect]
     Active Substance: PAROXETINE
     Indication: Depression
     Dosage: 20 MILLIGRAM, UNK
     Route: 048
     Dates: start: 202212, end: 20230607

REACTIONS (4)
  - Hepatic cytolysis [Recovered/Resolved]
  - Prothrombin time ratio decreased [Recovered/Resolved]
  - Confusional state [Recovered/Resolved]
  - Jaundice [Recovered/Resolved]

NARRATIVE: CASE EVENT DATE: 20230601
